FAERS Safety Report 23909989 (Version 5)
Quarter: 2024Q3

REPORT INFORMATION
  Report Type: Spontaneous
  Country: CL (occurrence: CL)
  Receive Date: 20240528
  Receipt Date: 20240925
  Transmission Date: 20241017
  Serious: Yes (Other)
  Sender: BIOMARIN
  Company Number: CL-SA-SAC20240301000041

PATIENT

DRUGS (2)
  1. LARONIDASE [Suspect]
     Active Substance: LARONIDASE
     Indication: Mucopolysaccharidosis I
     Dosage: 11.6 MG, QW
     Route: 041
     Dates: end: 2024
  2. LARONIDASE [Suspect]
     Active Substance: LARONIDASE
     Dosage: 3 DF, QW
     Route: 041
     Dates: start: 2024

REACTIONS (11)
  - Colitis [Recovered/Resolved]
  - Chest pain [Recovered/Resolved]
  - Chest pain [Not Recovered/Not Resolved]
  - Vomiting [Not Recovered/Not Resolved]
  - Diarrhoea [Recovered/Resolved]
  - Pyrexia [Unknown]
  - Headache [Unknown]
  - Gastroenteritis [Recovered/Resolved]
  - Vomiting [Not Recovered/Not Resolved]
  - Diarrhoea [Unknown]
  - Pyrexia [Recovered/Resolved]

NARRATIVE: CASE EVENT DATE: 20240223
